FAERS Safety Report 17242745 (Version 1)
Quarter: 2020Q1

REPORT INFORMATION
  Report Type: Spontaneous
  Country: US (occurrence: US)
  Receive Date: 20200106
  Receipt Date: 20200106
  Transmission Date: 20200409
  Serious: Yes (Other)
  Sender: FDA-Public Use
  Company Number: None

PATIENT
  Age: 68 Year
  Sex: Female

DRUGS (1)
  1. SYNTHROID [Suspect]
     Active Substance: LEVOTHYROXINE SODIUM
     Indication: HYPOTHYROIDISM
     Route: 048
     Dates: start: 20191013, end: 20191231

REACTIONS (4)
  - Ageusia [None]
  - Anosmia [None]
  - Blood thyroid stimulating hormone increased [None]
  - Product quality issue [None]

NARRATIVE: CASE EVENT DATE: 20191201
